FAERS Safety Report 6704972-1 (Version None)
Quarter: 2010Q2

REPORT INFORMATION
  Report Type: 
  Country: None (occurrence: None)
  Receive Date: 20100430
  Receipt Date: 20100427
  Transmission Date: 20101027
  Serious: Yes (Hospitalization)
  Sender: FDA-Public Use
  Company Number: A0817901A

PATIENT
  Age: 52 Year
  Sex: Female

DRUGS (1)
  1. AVANDIA [Suspect]
     Indication: DRUG USE FOR UNKNOWN INDICATION

REACTIONS (7)
  - BALANCE DISORDER [None]
  - CHEST PAIN [None]
  - EYE DISORDER [None]
  - HEADACHE [None]
  - MEMORY IMPAIRMENT [None]
  - MUSCLE SPASMS [None]
  - SYSTEMIC LUPUS ERYTHEMATOSUS [None]
